FAERS Safety Report 18000756 (Version 1)
Quarter: 2020Q3

REPORT INFORMATION
  Report Type: Spontaneous
  Country: US (occurrence: US)
  Receive Date: 20200709
  Receipt Date: 20200709
  Transmission Date: 20201103
  Serious: Yes (Other)
  Sender: FDA-Public Use
  Company Number: US-SA-2020SA176585

PATIENT

DRUGS (12)
  1. LIDOCAINE. [Concomitant]
     Active Substance: LIDOCAINE
  2. EPINEPHRINE MINIJET [Concomitant]
  3. METOPROLOL. [Concomitant]
     Active Substance: METOPROLOL
  4. DIPHENHYDRAMINE. [Concomitant]
     Active Substance: DIPHENHYDRAMINE
  5. PRILOCAINE [Concomitant]
     Active Substance: PRILOCAINE
  6. DICYCLOMINE [Concomitant]
     Active Substance: DICYCLOMINE HYDROCHLORIDE
  7. TOVIAZ [Concomitant]
     Active Substance: FESOTERODINE FUMARATE
  8. FISH OIL [Concomitant]
     Active Substance: FISH OIL
  9. NORMAL SALINE [Concomitant]
     Active Substance: SODIUM CHLORIDE
  10. STERILE WATER [Concomitant]
     Active Substance: WATER
  11. LUMIZYME [Suspect]
     Active Substance: ALGLUCOSIDASE ALFA
     Indication: GLYCOGEN STORAGE DISEASE TYPE II
     Dosage: 1900 MG, QOW
     Route: 041
     Dates: start: 20200117, end: 2020
  12. LMX [AMOXICILLIN TRIHYDRATE;BACILLUS COAGULANS] [Concomitant]

REACTIONS (2)
  - Hip fracture [Unknown]
  - Product administration interrupted [Unknown]
